FAERS Safety Report 6170157-3 (Version None)
Quarter: 2009Q2

REPORT INFORMATION
  Report Type: 
  Country: None (occurrence: None)
  Receive Date: 20090427
  Receipt Date: 20090427
  Transmission Date: 20091009
  Serious: Yes (Other)
  Sender: FDA-Public Use
  Company Number: None

PATIENT
  Sex: Female
  Weight: 72.5755 kg

DRUGS (1)
  1. OCTAGAM [Suspect]
     Indication: DERMATOMYOSITIS
     Dates: start: 20090420, end: 20090423

REACTIONS (1)
  - MENINGITIS ASEPTIC [None]
